FAERS Safety Report 6519013-9 (Version None)
Quarter: 2009Q4

REPORT INFORMATION
  Report Type: 
  Country: None (occurrence: None)
  Receive Date: 20091228
  Receipt Date: 20091214
  Transmission Date: 20100525
  Serious: Yes (Hospitalization, Other)
  Sender: FDA-Public Use
  Company Number: KR-SANOFI-AVENTIS-2009SA008325

PATIENT
  Age: 59 Year
  Sex: Female
  Weight: 60 kg

DRUGS (2)
  1. TRIAMCINOLONE ACETONIDE [Suspect]
     Dosage: DOSE:40 MILLIGRAM(S)/MILLILITRE
     Route: 008
  2. ANTIHYPERTENSIVES [Concomitant]

REACTIONS (6)
  - CUSHING'S SYNDROME [None]
  - CUSHINGOID [None]
  - EPIDURAL LIPOMATOSIS [None]
  - LIPOHYPERTROPHY [None]
  - PAIN IN EXTREMITY [None]
  - SPINAL CLAUDICATION [None]
